FAERS Safety Report 25483961 (Version 2)
Quarter: 2025Q2

REPORT INFORMATION
  Report Type: Spontaneous
  Country: CN (occurrence: CN)
  Receive Date: 20250626
  Receipt Date: 20250630
  Transmission Date: 20250716
  Serious: Yes (Life-Threatening, Hospitalization, Other)
  Sender: PFIZER
  Company Number: CN-MLMSERVICE-20250612-PI542946-00271-1

PATIENT
  Age: 18 Year
  Sex: Male

DRUGS (4)
  1. METHYLPREDNISOLONE [Suspect]
     Active Substance: METHYLPREDNISOLONE
     Indication: Nephrotic syndrome
     Dosage: 40 MG, 1X/DAY
     Dates: start: 202307
  2. PREDNISONE [Suspect]
     Active Substance: PREDNISONE
     Indication: Nephrotic syndrome
     Dates: start: 202307, end: 202309
  3. PREDNISONE [Suspect]
     Active Substance: PREDNISONE
     Dosage: 20 MG, 1X/DAY (DOSAGE WAS REDUCED TO 20 MG ONCE DAILY)
     Dates: start: 202309, end: 202309
  4. FUROSEMIDE [Suspect]
     Active Substance: FUROSEMIDE
     Indication: Nephrotic syndrome
     Dosage: 20 MG, 2X/DAY
     Dates: start: 202307

REACTIONS (6)
  - Pulmonary nocardiosis [Recovered/Resolved]
  - Stenotrophomonas infection [Recovered/Resolved]
  - Cytomegalovirus infection [Recovered/Resolved]
  - Pneumonia [Recovered/Resolved]
  - Acute respiratory distress syndrome [Recovered/Resolved]
  - Cushingoid [Unknown]

NARRATIVE: CASE EVENT DATE: 20230101
